FAERS Safety Report 9711832 (Version 3)
Quarter: 2013Q4

REPORT INFORMATION
  Report Type: Spontaneous
  Country: JP (occurrence: JP)
  Receive Date: 20131126
  Receipt Date: 20131217
  Transmission Date: 20140711
  Serious: Yes (Hospitalization)
  Sender: FDA-Public Use
  Company Number: JP-UCBSA-104147

PATIENT
  Age: 78 Year
  Sex: Male

DRUGS (7)
  1. NEUPRO [Suspect]
     Indication: PARKINSON^S DISEASE
     Dosage: 2MG/24HR
     Route: 062
     Dates: start: 20130425, end: 20130501
  2. NEUPRO [Suspect]
     Indication: PARKINSON^S DISEASE
     Dosage: 4MG/24HR
     Route: 062
     Dates: start: 20130502, end: 20130629
  3. NEUPRO [Suspect]
     Indication: PARKINSON^S DISEASE
     Dosage: 6MG/24HOUR
     Route: 062
     Dates: start: 20130630, end: 20131027
  4. SELEGILINE HYDROCHLORIDE [Concomitant]
  5. LEVODOPA AND BENSERAZIDE HYDROCHLORIDE [Concomitant]
  6. TRIHEXYPHENIDYL HYDROCHLORIDE [Concomitant]
  7. ENTACAPONE [Concomitant]
     Dates: start: 20130805

REACTIONS (4)
  - Bradycardia [Recovered/Resolved]
  - Atrioventricular block second degree [Recovered/Resolved]
  - Depressed level of consciousness [Recovered/Resolved]
  - Restlessness [Recovered/Resolved]
